APPROVED DRUG PRODUCT: MIRABEGRON
Active Ingredient: MIRABEGRON
Strength: 50MG
Dosage Form/Route: TABLET, EXTENDED RELEASE;ORAL
Application: A215948 | Product #002 | TE Code: AB
Applicant: ALKEM LABORATORIES LTD
Approved: Feb 12, 2024 | RLD: No | RS: No | Type: RX